FAERS Safety Report 8298306 (Version 2)
Quarter: 2014Q4

REPORT INFORMATION
  Report Type: Spontaneous
  Country: US (occurrence: US)
  Receive Date: 20111219
  Receipt Date: 20141016
  Transmission Date: 20150529
  Serious: Yes (Other)
  Sender: FDA-Public Use
  Company Number: US-ASTRAZENECA-2011SE28609

PATIENT
  Age: 904 Month
  Sex: Female
  Weight: 69.4 kg

DRUGS (17)
  1. SYMBICORT [Suspect]
     Active Substance: BUDESONIDE\FORMOTEROL FUMARATE DIHYDRATE
     Indication: CHRONIC OBSTRUCTIVE PULMONARY DISEASE
     Dosage: 160/4.5, TWO PUFFS IN THE MORNING
     Route: 055
     Dates: start: 201404, end: 20141004
  2. METOPROLOL ER [Suspect]
     Active Substance: METOPROLOL SUCCINATE
     Route: 048
  3. GABAPENTIN. [Concomitant]
     Active Substance: GABAPENTIN
  4. CALCIUM  VIT. D [Concomitant]
     Indication: MULTI-VITAMIN DEFICIENCY
  5. FLONASE SPRAY [Concomitant]
  6. LORAZEPAM. [Concomitant]
     Active Substance: LORAZEPAM
     Indication: ADVERSE EVENT
  7. CRESTOR [Suspect]
     Active Substance: ROSUVASTATIN CALCIUM
     Route: 048
  8. TRAMADOL [Concomitant]
     Active Substance: TRAMADOL
  9. EYE DROPS [Concomitant]
     Active Substance: TETRAHYDROZOLINE HYDROCHLORIDE
     Route: 047
  10. ZETIA [Concomitant]
     Active Substance: EZETIMIBE
     Indication: BLOOD CHOLESTEROL
  11. PANTOPRAZOLE [Concomitant]
     Active Substance: PANTOPRAZOLE SODIUM
  12. ASPIRIN. [Concomitant]
     Active Substance: ASPIRIN
  13. VENTOLIN [Concomitant]
     Active Substance: ALBUTEROL SULFATE
     Route: 055
  14. METFORMIN [Concomitant]
     Active Substance: METFORMIN HYDROCHLORIDE
  15. TRAZODONE [Concomitant]
     Active Substance: TRAZODONE HYDROCHLORIDE
  16. LOSARTAN POTASSIUM. [Concomitant]
     Active Substance: LOSARTAN POTASSIUM
  17. MINENTADINE [Concomitant]

REACTIONS (10)
  - Cataract [Unknown]
  - Diarrhoea [Unknown]
  - Abdominal discomfort [Unknown]
  - Cough [Unknown]
  - Dry eye [Unknown]
  - Off label use [Unknown]
  - Respiratory tract irritation [Unknown]
  - Dyspnoea [Unknown]
  - Choking [Unknown]
  - Lung disorder [Unknown]

NARRATIVE: CASE EVENT DATE: 201402
